FAERS Safety Report 4600218-9 (Version None)
Quarter: 2005Q1

REPORT INFORMATION
  Report Type: 
  Country: None (occurrence: None)
  Receive Date: 20050303
  Receipt Date: 20050303
  Transmission Date: 20050727
  Serious: No
  Sender: FDA-Public Use
  Company Number: None

PATIENT
  Age: 53 Year
  Sex: Male
  Weight: 79.4 kg

DRUGS (4)
  1. NATALIZUMA INJ    300 MG [Suspect]
     Indication: MULTIPLE SCLEROSIS
     Dosage: 300 MG    Q MONTH  INTRAVENOU
     Route: 042
     Dates: start: 20050223, end: 20050223
  2. SERTRALINE HCL [Concomitant]
  3. GLATIRAMER [Concomitant]
  4. TUBERCULIN [Concomitant]

REACTIONS (3)
  - BLOOD PRESSURE DECREASED [None]
  - HEART RATE DECREASED [None]
  - INFUSION RELATED REACTION [None]
